FAERS Safety Report 16720739 (Version 1)
Quarter: 2019Q3

REPORT INFORMATION
  Report Type: Spontaneous
  Country: SK (occurrence: SK)
  Receive Date: 20190820
  Receipt Date: 20190820
  Transmission Date: 20191005
  Serious: Yes (Hospitalization)
  Sender: FDA-Public Use
  Company Number: SK-MYLANLABS-2019M1077502

PATIENT
  Age: 8 Year
  Sex: Female

DRUGS (2)
  1. MINIRIN [Suspect]
     Active Substance: DESMOPRESSIN ACETATE
     Indication: ENURESIS
     Dosage: 0-0-1 BEFORE SLEEPING
     Route: 048
     Dates: start: 20181001, end: 20190214
  2. EURIN 5 MG TABLETY [Suspect]
     Active Substance: OXYBUTYNIN CHLORIDE
     Indication: ENURESIS
     Dosage: 0-0-1 AT 5:00 P.M.
     Route: 048
     Dates: start: 20181001, end: 20190214

REACTIONS (5)
  - Fall [Recovered/Resolved]
  - Vomiting [Recovered/Resolved]
  - Body temperature increased [Recovered/Resolved]
  - Fatigue [Recovered/Resolved]
  - Hyponatraemia [Recovered/Resolved]

NARRATIVE: CASE EVENT DATE: 20190214
